FAERS Safety Report 14298913 (Version 1)
Quarter: 2017Q4

REPORT INFORMATION
  Report Type: Spontaneous
  Country: US (occurrence: US)
  Receive Date: 20171216
  Receipt Date: 20171216
  Transmission Date: 20180321
  Serious: Yes (Other)
  Sender: FDA-Public Use
  Company Number: None

PATIENT
  Sex: Male
  Weight: 9.9 kg

DRUGS (1)
  1. OSELTAMIVIR 6MG/ML SUSPENSION [Suspect]
     Active Substance: OSELTAMIVIR PHOSPHATE
     Indication: INFLUENZA
     Dosage: QUANTITY:1 TEASPOON(S);?
     Route: 048
     Dates: start: 20171206, end: 20171208

REACTIONS (5)
  - Hallucination, visual [None]
  - Abnormal behaviour [None]
  - Emotional distress [None]
  - Fear [None]
  - Self-injurious ideation [None]

NARRATIVE: CASE EVENT DATE: 20171207
